FAERS Safety Report 7334992-8 (Version None)
Quarter: 2011Q1

REPORT INFORMATION
  Report Type: 
  Country: None (occurrence: None)
  Receive Date: 20110302
  Receipt Date: 20110302
  Transmission Date: 20110831
  Serious: Yes (Other)
  Sender: FDA-Public Use
  Company Number: None

PATIENT
  Age: 59 Year
  Sex: Male

DRUGS (1)
  1. KETOCONAZOLE [Suspect]
     Indication: FOLLICULITIS
     Dosage: 14 TOTAL TWO Q WEEKLY ORAL
     Route: 048
     Dates: start: 20101104

REACTIONS (1)
  - SUICIDAL IDEATION [None]
